FAERS Safety Report 14973077 (Version 2)
Quarter: 2018Q2

REPORT INFORMATION
  Report Type: Spontaneous
  Country: US (occurrence: US)
  Receive Date: 20180605
  Receipt Date: 20180607
  Transmission Date: 20180711
  Serious: No
  Sender: FDA-Public Use
  Company Number: US-JNJFOC-20180519631

PATIENT
  Age: 88 Year
  Sex: Female
  Weight: 51.26 kg

DRUGS (1)
  1. TYLENOL EXTRA STRENGTH [Suspect]
     Active Substance: ACETAMINOPHEN
     Indication: HERPES ZOSTER
     Dosage: ONE TIME IN THE MORNING AND ONE TIME IN THE NIGHT
     Route: 065

REACTIONS (1)
  - Product use in unapproved indication [Unknown]
